FAERS Safety Report 20534224 (Version 2)
Quarter: 2022Q1

REPORT INFORMATION
  Report Type: Spontaneous
  Country: US (occurrence: None)
  Receive Date: 20220301
  Receipt Date: 20220309
  Transmission Date: 20220423
  Serious: Yes (Death, Other)
  Sender: FDA-Public Use
  Company Number: US-ROCHE-3037229

PATIENT
  Age: 76 Year
  Sex: Male
  Weight: 69 kg

DRUGS (1)
  1. ACTEMRA [Suspect]
     Active Substance: TOCILIZUMAB
     Indication: COVID-19
     Route: 065
     Dates: start: 20220124, end: 20220124

REACTIONS (6)
  - Off label use [Unknown]
  - Death [Fatal]
  - Hypotension [Unknown]
  - Respiratory distress [Unknown]
  - Polyuria [Unknown]
  - Cheyne-Stokes respiration [Unknown]

NARRATIVE: CASE EVENT DATE: 20220218
